FAERS Safety Report 25963097 (Version 1)
Quarter: 2025Q4

REPORT INFORMATION
  Report Type: Spontaneous
  Country: US (occurrence: None)
  Receive Date: 20251024
  Receipt Date: 20251024
  Transmission Date: 20260118
  Serious: Yes (Hospitalization)
  Sender: FDA-CTU
  Company Number: None

PATIENT
  Sex: Male

DRUGS (6)
  1. GLASSIA [Suspect]
     Active Substance: .ALPHA.1-PROTEINASE INHIBITOR HUMAN
     Indication: Alpha-1 antitrypsin deficiency
     Dosage: OTHER STRENGTH : 1000;?OTHER FREQUENCY : WEEKLY;?
     Route: 042
     Dates: start: 20221014
  2. TOBRAMYCIN [Suspect]
     Active Substance: TOBRAMYCIN
     Indication: Bronchiectasis
     Dosage: FREQUENCY : TWICE A DAY;?OTHER ROUTE : VIA NEBULIZER;?
     Route: 050
     Dates: start: 20250603
  3. EPINEPHRINE AUTO-INJ [Concomitant]
  4. NORMAL SALINE FLUSH (10ML) [Concomitant]
  5. SOD CHLOR POS STERILE F (10ML) [Concomitant]
  6. HEPARIN L/L FLUSH SYR (5ML) [Concomitant]

REACTIONS (2)
  - Dyspnoea [None]
  - Therapy interrupted [None]
